FAERS Safety Report 10080574 (Version 1)
Quarter: 2014Q2

REPORT INFORMATION
  Report Type: Spontaneous
  Country: JP (occurrence: None)
  Receive Date: 20140414
  Receipt Date: 20140414
  Transmission Date: 20141212
  Serious: Yes (Death, Hospitalization)
  Sender: FDA-Public Use
  Company Number: 2014P1002923

PATIENT
  Age: 51 Year
  Sex: Male
  Weight: 48 kg

DRUGS (5)
  1. RISPERIDONE [Suspect]
     Dates: start: 20130131, end: 20130214
  2. VALPROIC ACID [Suspect]
     Dates: start: 20130131, end: 20130214
  3. LITHIUM [Suspect]
     Dates: start: 20130131, end: 20130214
  4. ZOTEPINE [Suspect]
     Dates: start: 20130131, end: 20130214
  5. FLUPHENAZINE DECANOATE [Suspect]
     Dates: start: 20130212, end: 20130214

REACTIONS (1)
  - Neuroleptic malignant syndrome [None]
